FAERS Safety Report 5327680-0 (Version None)
Quarter: 2007Q2

REPORT INFORMATION
  Report Type: 
  Country: None (occurrence: None)
  Receive Date: 20070514
  Receipt Date: 20070507
  Transmission Date: 20071010
  Serious: Yes (Death)
  Sender: FDA-Public Use
  Company Number: TAP2007Q00469

PATIENT
  Age: 3 Month
  Sex: Female

DRUGS (1)
  1. PREVACID [Suspect]
     Indication: GASTROOESOPHAGEAL REFLUX DISEASE
     Dosage: 7.5 MG, ONCE, ORAL
     Route: 048
     Dates: end: 20070313

REACTIONS (1)
  - SUDDEN INFANT DEATH SYNDROME [None]
